FAERS Safety Report 8237153-3 (Version None)
Quarter: 2012Q1

REPORT INFORMATION
  Report Type: 
  Country: None (occurrence: None)
  Receive Date: 20120327
  Receipt Date: 20120320
  Transmission Date: 20120608
  Serious: No
  Sender: FDA-Public Use
  Company Number: US-PFIZER INC-2012073249

PATIENT
  Sex: Male

DRUGS (3)
  1. GENTAMICIN SULFATE [Suspect]
     Dosage: UNK
  2. BENZATHINE PENICILLIN G [Suspect]
     Dosage: UNK
  3. VANCOMYCIN HCL [Suspect]
     Dosage: UNK

REACTIONS (2)
  - RASH [None]
  - DRUG HYPERSENSITIVITY [None]
